FAERS Safety Report 10131431 (Version 2)
Quarter: 2014Q2

REPORT INFORMATION
  Report Type: Report from Study
  Country: ZA (occurrence: ZA)
  Receive Date: 20140428
  Receipt Date: 20140428
  Transmission Date: 20141212
  Serious: Yes (Life-Threatening, Hospitalization, Other)
  Sender: FDA-Public Use
  Company Number: PHHY2013ZA049615

PATIENT
  Age: 72 Year
  Sex: Female

DRUGS (11)
  1. ACLASTA [Suspect]
     Indication: OSTEOPOROSIS
     Dosage: 5 MG/100ML, YEARLY
     Route: 042
     Dates: start: 201105
  2. ACLASTA [Suspect]
     Dosage: 5 MG/100ML, YEARLY
     Route: 042
     Dates: start: 201205, end: 201307
  3. ACLASTA [Suspect]
     Dosage: 5 MG/100ML, YEARLY
     Route: 042
     Dates: start: 201307
  4. CYMGEN [Concomitant]
     Indication: DEPRESSION
     Dosage: UNK UKN, UNK
  5. DIOTROXIN [Concomitant]
     Indication: HYPOTHYROIDISM
     Dosage: UNK UKN, UNK
  6. EPANUTIN [Concomitant]
     Indication: GENERALISED TONIC-CLONIC SEIZURE
     Dosage: UNK UKN, UNK
  7. LASIX [Concomitant]
     Indication: OEDEMA
     Dosage: UNK UKN, UNK
  8. ALZAM [Concomitant]
     Indication: ANXIETY DISORDER
     Dosage: UNK UKN, UNK
  9. DOPAQUEL [Concomitant]
     Indication: SCHIZOPHRENIA
  10. AMBIEN [Concomitant]
     Indication: INSOMNIA
     Dosage: UNK UKN, UNK
  11. COXFLAM [Concomitant]
     Indication: INFLAMMATORY PAIN

REACTIONS (21)
  - Pain in extremity [Unknown]
  - Chest pain [Unknown]
  - Musculoskeletal chest pain [Unknown]
  - Cardiac failure [Unknown]
  - Peripheral swelling [Unknown]
  - Decreased activity [Unknown]
  - Large intestine polyp [Unknown]
  - Abdominal neoplasm [Unknown]
  - Procedural intestinal perforation [Unknown]
  - Large intestine perforation [Unknown]
  - Infection [Unknown]
  - Blood glucose decreased [Unknown]
  - Malaise [Unknown]
  - Asthenia [Unknown]
  - Psychiatric symptom [Unknown]
  - Sinus disorder [Unknown]
  - Obstruction [Unknown]
  - Coeliac disease [Unknown]
  - Lung infection [Unknown]
  - Cough [Unknown]
  - Musculoskeletal pain [Unknown]
